FAERS Safety Report 8233195-2 (Version None)
Quarter: 2012Q1

REPORT INFORMATION
  Report Type: 
  Country: None (occurrence: None)
  Receive Date: 20120326
  Receipt Date: 20120320
  Transmission Date: 20120608
  Serious: No
  Sender: FDA-Public Use
  Company Number: US-PFIZER INC-2012074583

PATIENT

DRUGS (2)
  1. HALOPERIDOL [Suspect]
     Dosage: UNK
  2. NEURONTIN [Suspect]
     Dosage: UNK

REACTIONS (3)
  - CONDITION AGGRAVATED [None]
  - ANXIETY [None]
  - NERVOUSNESS [None]
